FAERS Safety Report 6406224-6 (Version None)
Quarter: 2009Q4

REPORT INFORMATION
  Report Type: 
  Country: None (occurrence: None)
  Receive Date: 20091019
  Receipt Date: 20091005
  Transmission Date: 20100525
  Serious: Yes (Other)
  Sender: FDA-Public Use
  Company Number: PHHY2009JP43526

PATIENT
  Sex: Male

DRUGS (8)
  1. DIOVAN T30230+TAB+HY [Suspect]
     Indication: HYPERTENSION
     Dosage: 20 MG, QD
     Route: 048
     Dates: start: 20090519, end: 20090616
  2. DIOVAN T30230+TAB+HY [Suspect]
     Dosage: 80 MG, QD
     Route: 048
     Dates: start: 20090617, end: 20090721
  3. DIOVAN T30230+TAB+HY [Suspect]
     Dosage: 120 MG, QD
     Route: 048
     Dates: start: 20090722, end: 20090811
  4. DIOVAN T30230+TAB+HY [Suspect]
     Dosage: 100 MG, QD
     Route: 048
     Dates: start: 20090812
  5. BLOPRESS [Concomitant]
     Indication: HYPERTENSION
     Dosage: 4 MG, UNK
     Route: 048
     Dates: start: 20080624, end: 20090519
  6. TOWARAT-CR [Concomitant]
     Indication: HYPERTENSION
     Dosage: 20 MG, UNK
     Route: 048
     Dates: start: 20080701
  7. TOWARAT-CR [Concomitant]
     Dosage: 20 MG, UNK
     Route: 048
  8. NORVASC [Concomitant]
     Indication: HYPERTENSION
     Dosage: 2.5 MG, UNK
     Route: 048
     Dates: start: 20090616, end: 20090623

REACTIONS (3)
  - ALTERED STATE OF CONSCIOUSNESS [None]
  - BLOOD PRESSURE DECREASED [None]
  - HEAT ILLNESS [None]
